FAERS Safety Report 5133222-5 (Version None)
Quarter: 2006Q4

REPORT INFORMATION
  Report Type: 
  Country: None (occurrence: None)
  Receive Date: 20061018
  Receipt Date: 20061013
  Transmission Date: 20070319
  Serious: Yes (Other)
  Sender: FDA-Public Use
  Company Number: 2006-05393

PATIENT
  Sex: Male

DRUGS (1)
  1. TESTOSTERONE ENANTHATE [Suspect]
     Indication: HYPOGONADISM MALE
     Dosage: 250 MG, Q 3-4 WEEKS, INTRAMUSCULAR
     Route: 030

REACTIONS (1)
  - BREAST CANCER MALE [None]
